FAERS Safety Report 7176666-2 (Version None)
Quarter: 2010Q4

REPORT INFORMATION
  Report Type: 
  Country: None (occurrence: None)
  Receive Date: 20101220
  Receipt Date: 20101208
  Transmission Date: 20110411
  Serious: Yes (Death, Hospitalization)
  Sender: FDA-Public Use
  Company Number: FR-JNJFOC-20100906784

PATIENT
  Age: 88 Year
  Sex: Female

DRUGS (13)
  1. TAVANIC [Suspect]
     Indication: DEVICE RELATED INFECTION
     Route: 048
  2. CONTRAMAL [Suspect]
     Indication: PAIN
     Route: 048
  3. KARDEGIC [Concomitant]
     Indication: ARTERIOSCLEROSIS OBLITERANS
     Route: 065
  4. EUPANTOL [Concomitant]
     Indication: ARTERIOSCLEROSIS OBLITERANS
     Route: 065
  5. RAMIPRIL [Concomitant]
     Indication: ARTERIOSCLEROSIS OBLITERANS
     Route: 065
  6. IMOVANE [Concomitant]
     Indication: INSOMNIA
     Route: 065
  7. LASIX [Concomitant]
     Route: 065
  8. ISOPHANE INSULIN [Concomitant]
     Indication: INSULIN-REQUIRING TYPE 2 DIABETES MELLITUS
     Route: 065
  9. NOVORAPID [Concomitant]
     Indication: INSULIN-REQUIRING TYPE 2 DIABETES MELLITUS
     Route: 065
  10. LOVENOX [Concomitant]
     Indication: THROMBOSIS PROPHYLAXIS
     Route: 065
  11. LEXOMIL [Concomitant]
     Indication: ANXIETY
     Route: 065
  12. ROCEPHIN [Concomitant]
  13. GENTAMYCIN-MP [Concomitant]
     Route: 065

REACTIONS (2)
  - DEVICE RELATED INFECTION [None]
  - GRAND MAL CONVULSION [None]
